FAERS Safety Report 12880634 (Version 1)
Quarter: 2016Q4

REPORT INFORMATION
  Report Type: Spontaneous
  Country: DE (occurrence: DE)
  Receive Date: 20161025
  Receipt Date: 20161025
  Transmission Date: 20170207
  Serious: Yes (Other)
  Sender: FDA-Public Use
  Company Number: DE-GLAXOSMITHKLINE-DE2016GSK155673

PATIENT
  Age: 48 Year
  Weight: 59 kg

DRUGS (1)
  1. CEFUROXIM [Suspect]
     Active Substance: CEFUROXIME
     Indication: OSTEITIS
     Dosage: 500 MG, BID
     Route: 048
     Dates: start: 20160913

REACTIONS (2)
  - Pseudomembranous colitis [Unknown]
  - Clostridium difficile infection [Recovered/Resolved]

NARRATIVE: CASE EVENT DATE: 20160915
